FAERS Safety Report 13345828 (Version 1)
Quarter: 2017Q1

REPORT INFORMATION
  Report Type: Spontaneous
  Country: US (occurrence: US)
  Receive Date: 20170317
  Receipt Date: 20170317
  Transmission Date: 20170428
  Serious: No
  Sender: FDA-Public Use
  Company Number: None

PATIENT
  Sex: Female
  Weight: 73.55 kg

DRUGS (1)
  1. LEVETIRACETAM. [Suspect]
     Active Substance: LEVETIRACETAM
     Indication: EPILEPSY
     Dosage: LEVETIRACETAM 500MG 3 TABS PO QD
     Route: 048
     Dates: start: 20120111

REACTIONS (5)
  - Dysphonia [None]
  - Abdominal distension [None]
  - Weight increased [None]
  - Sedation [None]
  - Dizziness [None]

NARRATIVE: CASE EVENT DATE: 20120111
